FAERS Safety Report 9905972 (Version 1)
Quarter: 2013Q2

REPORT INFORMATION
  Report Type: Spontaneous
  Country: US (occurrence: None)
  Receive Date: 20130305
  Receipt Date: 20130305
  Transmission Date: 20140414
  Serious: Yes (Other)
  Sender: FDA-Public Use
  Company Number: 163-21880-12041820

PATIENT
  Age: 70 Year
  Sex: Female
  Weight: 64.86 kg

DRUGS (9)
  1. REVLIMID (LENALIDOMIDE) (25 MILLIGRAM, CAPSULES) [Suspect]
     Indication: PLASMA CELL MYELOMA
     Dosage: 25 MG, HS, PO 06FEB2012 - THERAPY DATES (HOLD)
     Route: 048
     Dates: start: 20120206
  2. ASPIRIN (ACETYLSALICYLIC ACID) [Concomitant]
  3. ATENOL (ATENOLOL) (UNKNOWN) [Concomitant]
  4. ATENOLOL (ATENOLOL) (UNKNOWN) [Concomitant]
  5. CALCIUM (CALCIUM) (UNKNOWN) [Concomitant]
  6. DIOVAN (VALSARTAN) (UNKNOWN) [Concomitant]
  7. FISH OIL (FISH OIL) (UNKNOWN) [Concomitant]
  8. LASIX (FUROSEMIDE) (UNKNOWN) [Concomitant]
  9. NORVASC (AMLODIPINE BESILATE) (UNKNOWN) [Concomitant]

REACTIONS (5)
  - Anaemia [None]
  - Fatigue [None]
  - Rash [None]
  - Tremor [None]
  - Pain [None]
